FAERS Safety Report 24600519 (Version 1)
Quarter: 2024Q4

REPORT INFORMATION
  Report Type: Spontaneous
  Country: FR (occurrence: FR)
  Receive Date: 20241110
  Receipt Date: 20241110
  Transmission Date: 20250114
  Serious: Yes (Hospitalization, Other)
  Sender: ALEXION PHARMACEUTICALS
  Company Number: None

PATIENT
  Age: 71 Year

DRUGS (18)
  1. LYNPARZA [Suspect]
     Active Substance: OLAPARIB
     Indication: Ovarian cancer
     Dosage: 600 MILLIGRAM, QD
  2. LYNPARZA [Suspect]
     Active Substance: OLAPARIB
     Dosage: 600 MILLIGRAM, QD
  3. LYNPARZA [Suspect]
     Active Substance: OLAPARIB
     Dosage: 600 MILLIGRAM, QD
  4. LYNPARZA [Suspect]
     Active Substance: OLAPARIB
     Dosage: 600 MILLIGRAM, QD
  5. LYNPARZA [Suspect]
     Active Substance: OLAPARIB
     Dosage: 500 MILLIGRAM, QD
  6. LYNPARZA [Suspect]
     Active Substance: OLAPARIB
     Dosage: 500 MILLIGRAM, QD
  7. LYNPARZA [Suspect]
     Active Substance: OLAPARIB
     Dosage: 500 MILLIGRAM, QD
  8. LYNPARZA [Suspect]
     Active Substance: OLAPARIB
     Dosage: 500 MILLIGRAM, QD
  9. AVASTIN [Suspect]
     Active Substance: BEVACIZUMAB
     Indication: Ovarian cancer
  10. AVASTIN [Suspect]
     Active Substance: BEVACIZUMAB
  11. BISOPROLOL FUMARATE\PERINDOPRIL ARGININE [Suspect]
     Active Substance: BISOPROLOL FUMARATE\PERINDOPRIL ARGININE
     Indication: Hypertension
     Dosage: 0.5 DOSAGE FORM, QD
  12. BISOPROLOL FUMARATE\PERINDOPRIL ARGININE [Suspect]
     Active Substance: BISOPROLOL FUMARATE\PERINDOPRIL ARGININE
     Dosage: 0.5 DOSAGE FORM, QD
  13. BISOPROLOL FUMARATE\PERINDOPRIL ARGININE [Suspect]
     Active Substance: BISOPROLOL FUMARATE\PERINDOPRIL ARGININE
     Dosage: 1 DOSAGE FORM, QD
  14. BISOPROLOL FUMARATE\PERINDOPRIL ARGININE [Suspect]
     Active Substance: BISOPROLOL FUMARATE\PERINDOPRIL ARGININE
     Dosage: 1 DOSAGE FORM, QD
  15. PENICILLIN V [Concomitant]
     Active Substance: PENICILLIN V
     Indication: Infection prophylaxis
     Dosage: UNK UNK, QD
  16. PENICILLIN V [Concomitant]
     Active Substance: PENICILLIN V
     Indication: Splenectomy
     Dosage: UNK UNK, QD
  17. LOPERAMIDE [Concomitant]
     Active Substance: LOPERAMIDE
     Indication: Post procedural diarrhoea
     Dosage: 2 DOSAGE FORM, QD
  18. LOPERAMIDE [Concomitant]
     Active Substance: LOPERAMIDE
     Dosage: 2 DOSAGE FORM, QD

REACTIONS (2)
  - Immune thrombocytopenia [Recovering/Resolving]
  - Anaemia [Recovered/Resolved]
